FAERS Safety Report 5917341-9 (Version None)
Quarter: 2008Q4

REPORT INFORMATION
  Report Type: 
  Country: None (occurrence: None)
  Receive Date: 20081014
  Receipt Date: 20081006
  Transmission Date: 20090506
  Serious: Yes (Hospitalization, Other)
  Sender: FDA-Public Use
  Company Number: US-ELI_LILLY_AND_COMPANY-US200810001255

PATIENT
  Sex: Female

DRUGS (5)
  1. FORTEO [Suspect]
     Dates: start: 20081001
  2. NITROGLYCERIN [Concomitant]
     Indication: CHEST PAIN
     Dosage: UNK, AS NEEDED
  3. ASPIRIN [Concomitant]
     Dosage: UNK, DAILY (1/D)
  4. PREVACID [Concomitant]
     Indication: OESOPHAGEAL DISORDER
     Dosage: UNK, DAILY (1/D)
  5. CALCIUM [Concomitant]
     Dosage: 600 MG, DAILY (1/D)

REACTIONS (9)
  - ASTHENIA [None]
  - CHEST PAIN [None]
  - HEART RATE DECREASED [None]
  - HYPERHIDROSIS [None]
  - MYOCARDIAL INFARCTION [None]
  - NAUSEA [None]
  - NECK PAIN [None]
  - PAIN IN EXTREMITY [None]
  - PRESYNCOPE [None]
